FAERS Safety Report 5579261-1 (Version None)
Quarter: 2008Q1

REPORT INFORMATION
  Report Type: 
  Country: None (occurrence: None)
  Receive Date: 20080102
  Receipt Date: 20071219
  Transmission Date: 20080703
  Serious: Yes (Death, Other)
  Sender: FDA-Public Use
  Company Number: US-ELI_LILLY_AND_COMPANY-US200712004270

PATIENT
  Sex: Female

DRUGS (1)
  1. FORTEO [Suspect]

REACTIONS (4)
  - COMPLETED SUICIDE [None]
  - HEPATIC NEOPLASM MALIGNANT [None]
  - INTERVERTEBRAL DISC PROTRUSION [None]
  - LUNG NEOPLASM MALIGNANT [None]
